FAERS Safety Report 4275972-9 (Version None)
Quarter: 2004Q1

REPORT INFORMATION
  Report Type: 
  Country: None (occurrence: None)
  Receive Date: 20040121
  Receipt Date: 20030424
  Transmission Date: 20041129
  Serious: No
  Sender: FDA-Public Use
  Company Number: US-GLAXOSMITHKLINE-A0406194A

PATIENT
  Age: 64 Year
  Sex: Male

DRUGS (5)
  1. VALTREX [Suspect]
     Indication: HERPES SIMPLEX
     Dosage: 500MG TWICE PER DAY
     Route: 048
     Dates: start: 20020911, end: 20021001
  2. BLOOD PRESSURE MEDICATION [Concomitant]
  3. PAIN MEDICATION [Concomitant]
  4. ANTIBIOTIC [Concomitant]
     Indication: CYSTITIS
  5. UNSPECIFIED MEDICATION [Concomitant]

REACTIONS (4)
  - ARTHRALGIA [None]
  - MYALGIA [None]
  - OEDEMA PERIPHERAL [None]
  - PARAESTHESIA [None]
